FAERS Safety Report 6084647-5 (Version None)
Quarter: 2009Q1

REPORT INFORMATION
  Report Type: 
  Country: None (occurrence: None)
  Receive Date: 20090211
  Receipt Date: 20081121
  Transmission Date: 20090719
  Serious: Yes (Other)
  Sender: FDA-Public Use
  Company Number: US-WYE-H06938408

PATIENT
  Age: 65 Year
  Sex: Female
  Weight: 73.09 kg

DRUGS (2)
  1. EFFEXOR [Suspect]
     Indication: DEPRESSION
     Dosage: ^100-175 MG ONCE A DAY^, ORAL
     Route: 048
  2. AMBIEN [Concomitant]

REACTIONS (3)
  - ARRHYTHMIA [None]
  - BUNDLE BRANCH BLOCK RIGHT [None]
  - CONDITION AGGRAVATED [None]
